FAERS Safety Report 18977619 (Version 2)
Quarter: 2021Q4

REPORT INFORMATION
  Report Type: Report from Study
  Country: HU (occurrence: HU)
  Receive Date: 20210306
  Receipt Date: 20211216
  Transmission Date: 20220304
  Serious: Yes (Death, Hospitalization, Other)
  Sender: FDA-Public Use
  Company Number: HU-NOVARTISPH-NVSC2021HU045648

PATIENT
  Sex: Male

DRUGS (1)
  1. GLYCOPYRRONIUM\INDACATEROL [Suspect]
     Active Substance: GLYCOPYRRONIUM\INDACATEROL
     Indication: Chronic obstructive pulmonary disease
     Dosage: UNK
     Route: 065

REACTIONS (6)
  - Lung neoplasm [Fatal]
  - Dyspnoea [Unknown]
  - Neoplasm [Unknown]
  - Malaise [Unknown]
  - Asthenia [Unknown]
  - COVID-19 [Unknown]
